FAERS Safety Report 13955683 (Version 1)
Quarter: 2017Q3

REPORT INFORMATION
  Report Type: Spontaneous
  Country: US (occurrence: US)
  Receive Date: 20170911
  Receipt Date: 20170911
  Transmission Date: 20171128
  Serious: No
  Sender: FDA-Public Use
  Company Number: US-GLAXOSMITHKLINE-US2017137856

PATIENT
  Age: 60 Year
  Sex: Female

DRUGS (1)
  1. VOLTAREN [Suspect]
     Active Substance: DICLOFENAC SODIUM
     Indication: NEUROPATHIC ARTHROPATHY
     Dosage: 6 WEEKS
     Dates: start: 201707

REACTIONS (3)
  - Application site reaction [Unknown]
  - Drug effective for unapproved indication [Unknown]
  - Off label use [Unknown]
